FAERS Safety Report 5860978-6 (Version None)
Quarter: 2008Q3

REPORT INFORMATION
  Report Type: 
  Country: None (occurrence: None)
  Receive Date: 20080827
  Receipt Date: 20080117
  Transmission Date: 20090109
  Serious: No
  Sender: FDA-Public Use
  Company Number: US-ABBOTT-08P-163-0434066-00

PATIENT
  Age: 75 Year
  Sex: Male

DRUGS (12)
  1. NIASPAN [Suspect]
     Indication: DRUG USE FOR UNKNOWN INDICATION
     Route: 048
     Dates: start: 20061001, end: 20080101
  2. NIASPAN [Suspect]
     Route: 048
     Dates: start: 20080101
  3. ACETYLSALICYLIC ACID SRT [Concomitant]
     Indication: PROPHYLAXIS
  4. ACETYLSALICYLIC ACID SRT [Concomitant]
     Indication: ADVERSE DRUG REACTION
  5. LISINOPRIL [Concomitant]
     Indication: DRUG USE FOR UNKNOWN INDICATION
  6. HYDROCHLOROTHIAZIDE [Concomitant]
     Indication: DRUG USE FOR UNKNOWN INDICATION
  7. ROSIGLITAZONE MALEATE [Concomitant]
     Indication: DRUG USE FOR UNKNOWN INDICATION
  8. IBUPROFEN [Concomitant]
     Indication: DRUG USE FOR UNKNOWN INDICATION
  9. OXYBUTYNIN CHLORIDE [Concomitant]
     Indication: DRUG USE FOR UNKNOWN INDICATION
  10. ATORVASTATIN CALCIUM [Concomitant]
     Indication: DRUG USE FOR UNKNOWN INDICATION
  11. GLIPAZIDE ER [Concomitant]
     Indication: DRUG USE FOR UNKNOWN INDICATION
  12. METFORMIN HCL [Concomitant]
     Indication: DRUG USE FOR UNKNOWN INDICATION

REACTIONS (1)
  - RASH [None]
